FAERS Safety Report 13886541 (Version 1)
Quarter: 2017Q3

REPORT INFORMATION
  Report Type: Spontaneous
  Country: US (occurrence: US)
  Receive Date: 20170821
  Receipt Date: 20170821
  Transmission Date: 20171127
  Serious: No
  Sender: FDA-Public Use
  Company Number: US-ALLERGAN-1670270US

PATIENT
  Age: 69 Year
  Sex: Male

DRUGS (1)
  1. ANDRODERM [Suspect]
     Active Substance: TESTOSTERONE
     Indication: BLOOD TESTOSTERONE DECREASED
     Dosage: 4 MG, UNK
     Route: 062
     Dates: start: 201606

REACTIONS (2)
  - Nocturia [Not Recovered/Not Resolved]
  - Application site pruritus [Not Recovered/Not Resolved]
